FAERS Safety Report 9524426 (Version 2)
Quarter: 2014Q1

REPORT INFORMATION
  Report Type: Spontaneous
  Country: US (occurrence: None)
  Receive Date: 20130305
  Receipt Date: 20140306
  Transmission Date: 20141002
  Serious: Yes (Hospitalization, Other)
  Sender: FDA-Public Use
  Company Number: 163-21880-12022502

PATIENT
  Age: 65 Year
  Sex: Male

DRUGS (1)
  1. REVLIMID (LENALIDOMIDE) (15 MILLIGRAM) (CAPSULES) [Suspect]
     Indication: PLASMA CELL MYELOMA
     Route: 048
     Dates: start: 201009

REACTIONS (2)
  - Hip fracture [None]
  - Fall [None]
